FAERS Safety Report 16922329 (Version 2)
Quarter: 2019Q4

REPORT INFORMATION
  Report Type: Report from Study
  Country: None (occurrence: FI)
  Receive Date: 20191016
  Receipt Date: 20191023
  Transmission Date: 20200122
  Serious: Yes (Death)
  Sender: FDA-Public Use
  Company Number: FI-ABBVIE-19K-055-2964346-00

PATIENT
  Sex: Male

DRUGS (3)
  1. WARFARIN [Concomitant]
     Active Substance: WARFARIN
     Indication: PRODUCT USED FOR UNKNOWN INDICATION
  2. DUODOPA [Suspect]
     Active Substance: CARBIDOPA\LEVODOPA
     Indication: PARKINSON^S DISEASE
     Dosage: THE REPORTER DOES NOT REMEMBER, 16 H TREATMENT
     Route: 050
     Dates: start: 2017, end: 20191009
  3. POTASSIUM SUPPLEMENT [Concomitant]
     Active Substance: POTASSIUM
     Indication: PRODUCT USED FOR UNKNOWN INDICATION

REACTIONS (5)
  - Inflammatory marker increased [Unknown]
  - Infection [Unknown]
  - Pyelitis [Unknown]
  - Pneumonia [Fatal]
  - Wrong technique in product usage process [Unknown]
